FAERS Safety Report 15092665 (Version 5)
Quarter: 2019Q3

REPORT INFORMATION
  Report Type: Report from Study
  Country: None (occurrence: US)
  Receive Date: 20180629
  Receipt Date: 20190806
  Transmission Date: 20191004
  Serious: Yes (Other)
  Sender: FDA-Public Use
  Company Number: US-ABBVIE-18S-163-2400035-00

PATIENT
  Sex: Male

DRUGS (7)
  1. XTANDI [Suspect]
     Active Substance: ENZALUTAMIDE
     Indication: PROSTATE CANCER
     Route: 048
     Dates: start: 20170901
  2. ASPIRIN. [Concomitant]
     Active Substance: ASPIRIN
     Indication: PRODUCT USED FOR UNKNOWN INDICATION
  3. XTANDI [Suspect]
     Active Substance: ENZALUTAMIDE
     Route: 048
  4. XTANDI [Suspect]
     Active Substance: ENZALUTAMIDE
     Route: 048
     Dates: start: 20180926
  5. CLEARLUNGS CHINESE HERBAL FORMULA [Concomitant]
     Indication: PRODUCT USED FOR UNKNOWN INDICATION
  6. VITAMIN D [Concomitant]
     Active Substance: VITAMIN D NOS
     Indication: PRODUCT USED FOR UNKNOWN INDICATION
  7. LUPRON [Suspect]
     Active Substance: LEUPROLIDE ACETATE
     Indication: PRODUCT USED FOR UNKNOWN INDICATION
     Route: 065
     Dates: start: 2009

REACTIONS (9)
  - Headache [Not Recovered/Not Resolved]
  - Cerebrovascular accident [Unknown]
  - Lung infection [Not Recovered/Not Resolved]
  - Asthenia [Not Recovered/Not Resolved]
  - Blood testosterone decreased [Unknown]
  - Blood cholesterol increased [Unknown]
  - Pain [Unknown]
  - Somnolence [Unknown]
  - Fatigue [Unknown]
